FAERS Safety Report 6387877-8 (Version None)
Quarter: 2009Q4

REPORT INFORMATION
  Report Type: 
  Country: None (occurrence: None)
  Receive Date: 20091005
  Receipt Date: 20090914
  Transmission Date: 20100525
  Serious: Yes (Other)
  Sender: FDA-Public Use
  Company Number: US-BAYER-200914227BCC

PATIENT
  Sex: Female

DRUGS (2)
  1. ONE-A-DAY WOMEN'S 50+ ADVANTAGE [Suspect]
     Indication: VITAMIN SUPPLEMENTATION
     Route: 048
  2. ASPIRIN (UNKNOWN BRAND) [Suspect]
     Indication: BLOOD DISORDER
     Dosage: TOTAL DAILY DOSE: 162 MG  UNIT DOSE: 81 MG
     Route: 048

REACTIONS (1)
  - HAEMORRHAGIC STROKE [None]
